FAERS Safety Report 7811137-9 (Version None)
Quarter: 2011Q4

REPORT INFORMATION
  Report Type: 
  Country: None (occurrence: None)
  Receive Date: 20111013
  Receipt Date: 20111005
  Transmission Date: 20120403
  Serious: Yes (Hospitalization)
  Sender: FDA-Public Use
  Company Number: US-ASTELLAS-2011US004916

PATIENT
  Sex: Female

DRUGS (1)
  1. ERLOTINIB HYDROCHLORIDE [Suspect]
     Indication: PANCREATIC CARCINOMA
     Dosage: 100 MG, UID/QD
     Route: 048
     Dates: start: 20110803, end: 20110831

REACTIONS (5)
  - RASH [None]
  - CONSTIPATION [None]
  - BILE DUCT OBSTRUCTION [None]
  - UNEVALUABLE EVENT [None]
  - GALLBLADDER OPERATION [None]
